FAERS Safety Report 7053665-2 (Version None)
Quarter: 2010Q4

REPORT INFORMATION
  Report Type: 
  Country: None (occurrence: None)
  Receive Date: 20101020
  Receipt Date: 20101011
  Transmission Date: 20110411
  Serious: Yes (Disabling)
  Sender: FDA-Public Use
  Company Number: PT-JNJFOC-20100706280

PATIENT
  Age: 45 Year
  Sex: Male

DRUGS (3)
  1. REMICADE [Suspect]
     Indication: CROHN'S DISEASE
     Route: 042
  2. REMICADE [Suspect]
     Route: 042
  3. REMICADE [Suspect]
     Route: 042

REACTIONS (6)
  - ANAEMIA [None]
  - FATIGUE [None]
  - HYPOKINESIA [None]
  - MUSCLE DISORDER [None]
  - SMALL INTESTINAL OBSTRUCTION [None]
  - SMALL INTESTINAL STENOSIS [None]
